FAERS Safety Report 4452679-6 (Version None)
Quarter: 2004Q3

REPORT INFORMATION
  Report Type: 
  Country: None (occurrence: None)
  Receive Date: 20040813
  Receipt Date: 20040603
  Transmission Date: 20050211
  Serious: No
  Sender: FDA-Public Use
  Company Number: S04-USA-03805-01

PATIENT
  Age: 79 Year
  Sex: Female

DRUGS (8)
  1. NAMENDA [Suspect]
     Indication: DEMENTIA ALZHEIMER'S TYPE
     Dosage: 5 MG QHS PO
     Route: 048
  2. NAMENDA [Suspect]
     Indication: DEMENTIA ALZHEIMER'S TYPE
     Dosage: 2.5 MG QHS PO
     Route: 048
  3. ARICEPT [Concomitant]
  4. SNYTHROID (LEVOTHYROXINE SODIUM) [Concomitant]
  5. DETROL [Concomitant]
  6. LIPITOR [Concomitant]
  7. ZANTAC [Concomitant]
  8. FOSAMAX [Concomitant]

REACTIONS (3)
  - ASTHENIA [None]
  - HEAD DISCOMFORT [None]
  - HEART RATE INCREASED [None]
